FAERS Safety Report 9477189 (Version 1)
Quarter: 2013Q3

REPORT INFORMATION
  Report Type: Not Available
  Country: US (occurrence: US)
  Receive Date: 20130826
  Receipt Date: 20130826
  Transmission Date: 20140515
  Serious: No
  Sender: FDA-Public Use
  Company Number: US-AMARIN PHARMA, INC.-2013AMR000040

PATIENT
  Sex: Female
  Weight: 80.36 kg

DRUGS (1)
  1. VASCEPA [Suspect]
     Indication: BLOOD CHOLESTEROL INCREASED
     Dosage: PATIENT TAKES 2 GRAMS PER DAY ONE CAPSULE IN AM AND ONE CAPSULE IN PM
     Dates: start: 201304

REACTIONS (3)
  - Dyspepsia [None]
  - Drug effect increased [Unknown]
  - Incorrect product storage [Unknown]
